FAERS Safety Report 18930537 (Version 1)
Quarter: 2021Q1

REPORT INFORMATION
  Report Type: Other
  Country: CA (occurrence: CA)
  Receive Date: 20210224
  Receipt Date: 20210224
  Transmission Date: 20210420
  Serious: Yes (Other)
  Sender: FDA-Public Use
  Company Number: CA-CELLTRION INC.-2021CA002187

PATIENT

DRUGS (3)
  1. QUETIAPINE. [Concomitant]
     Active Substance: QUETIAPINE
  2. RITUXIMAB (UNKNOWN) [Suspect]
     Active Substance: RITUXIMAB
     Indication: RELAPSING-REMITTING MULTIPLE SCLEROSIS
     Route: 065
  3. LITHIUM. [Concomitant]
     Active Substance: LITHIUM

REACTIONS (2)
  - Vibratory sense increased [Unknown]
  - Off label use [Unknown]
